FAERS Safety Report 17444273 (Version 1)
Quarter: 2020Q1

REPORT INFORMATION
  Report Type: Spontaneous
  Country: TR (occurrence: TR)
  Receive Date: 20200221
  Receipt Date: 20200221
  Transmission Date: 20200409
  Serious: Yes (Death)
  Sender: FDA-Public Use
  Company Number: None

PATIENT
  Age: 24 Year
  Sex: Male

DRUGS (1)
  1. INSOMIN [OPIPRAMOL HYDROCHLORIDE] [Suspect]
     Active Substance: OPIPRAMOL HYDROCHLORIDE
     Route: 048

REACTIONS (6)
  - Aggression [None]
  - Anger [None]
  - Hanging [None]
  - Completed suicide [None]
  - Mood altered [None]
  - Social avoidant behaviour [None]

NARRATIVE: CASE EVENT DATE: 20200216
